FAERS Safety Report 18779885 (Version 1)
Quarter: 2021Q1

REPORT INFORMATION
  Report Type: Spontaneous
  Country: US (occurrence: US)
  Receive Date: 20210125
  Receipt Date: 20210125
  Transmission Date: 20210419
  Serious: Yes (Death, Other)
  Sender: FDA-Public Use
  Company Number: US-CADILA HEALTHCARE LIMITED-US-ZYDUS-061112

PATIENT

DRUGS (1)
  1. METFORMIN [Suspect]
     Active Substance: METFORMIN HYDROCHLORIDE
     Indication: SUICIDE ATTEMPT
     Dosage: 270 GRAM
     Route: 048

REACTIONS (7)
  - Metabolic acidosis [Not Recovered/Not Resolved]
  - Overdose [Unknown]
  - Hyperglycaemia [Unknown]
  - Cardiac arrest [Fatal]
  - Vomiting [Unknown]
  - Hypotension [Not Recovered/Not Resolved]
  - Lactic acidosis [Not Recovered/Not Resolved]
